FAERS Safety Report 20787816 (Version 1)
Quarter: 2022Q2

REPORT INFORMATION
  Report Type: Report from Study
  Country: US (occurrence: US)
  Receive Date: 20220505
  Receipt Date: 20220505
  Transmission Date: 20220720
  Serious: Yes (Other)
  Sender: FDA-Public Use
  Company Number: US-TAKEDA-2021TUS038424

PATIENT
  Sex: Female
  Weight: 97 kg

DRUGS (30)
  1. HUMAN IMMUNOGLOBULIN G [Suspect]
     Active Substance: HUMAN IMMUNOGLOBULIN G
     Indication: Chronic sinusitis
     Dosage: 12 GRAM, 1/WEEK
     Route: 058
     Dates: start: 20210503
  2. HUMAN IMMUNOGLOBULIN G [Suspect]
     Active Substance: HUMAN IMMUNOGLOBULIN G
     Indication: Infection
     Dosage: 12 GRAM, Q2WEEKS
     Route: 058
     Dates: start: 20210503
  3. ACETAMINOPHEN [Concomitant]
     Active Substance: ACETAMINOPHEN
  4. DIPHENHYDRAMINE [Concomitant]
     Active Substance: DIPHENHYDRAMINE
  5. EPINEPHRINE [Concomitant]
     Active Substance: EPINEPHRINE
  6. Lmx [Concomitant]
  7. COMBIGAN [Concomitant]
     Active Substance: BRIMONIDINE TARTRATE\TIMOLOL MALEATE
  8. ACARBOSE [Concomitant]
     Active Substance: ACARBOSE
  9. NADOLOL [Concomitant]
     Active Substance: NADOLOL
  10. METHOTREXATE [Concomitant]
     Active Substance: METHOTREXATE
  11. CLONAZEPAM [Concomitant]
     Active Substance: CLONAZEPAM
  12. ALBUTEROL SULFATE [Concomitant]
     Active Substance: ALBUTEROL SULFATE
  13. HYDROXYZINE HYDROCHLORIDE [Concomitant]
     Active Substance: HYDROXYZINE HYDROCHLORIDE
  14. FLUOXETINE HYDROCHLORIDE [Concomitant]
     Active Substance: FLUOXETINE HYDROCHLORIDE
  15. CETIRIZINE HCL [Concomitant]
     Active Substance: CETIRIZINE HYDROCHLORIDE
  16. BIOTIN [Concomitant]
     Active Substance: BIOTIN
  17. LATANOPROST [Concomitant]
     Active Substance: LATANOPROST
  18. DICLOFENAC SODIUM [Concomitant]
     Active Substance: DICLOFENAC SODIUM
  19. OMEPRAZOLE [Concomitant]
     Active Substance: OMEPRAZOLE
  20. BUPROPION [Concomitant]
     Active Substance: BUPROPION
  21. TOPIRAMATE [Concomitant]
     Active Substance: TOPIRAMATE
  22. VITAMIN B12 [Concomitant]
     Active Substance: CYANOCOBALAMIN
  23. LIDOCAINE [Concomitant]
     Active Substance: LIDOCAINE
  24. VITAMINS [Concomitant]
     Active Substance: VITAMINS
  25. HERBALS\TURMERIC [Concomitant]
     Active Substance: HERBALS\TURMERIC
  26. REMICADE [Concomitant]
     Active Substance: INFLIXIMAB
  27. VITAMIN D2 [Concomitant]
     Active Substance: ERGOCALCIFEROL
  28. RHOPRESSA [Concomitant]
     Active Substance: NETARSUDIL MESYLATE
  29. VITAMIN D [Concomitant]
     Active Substance: VITAMIN D NOS
  30. VITAMIN B [Concomitant]
     Active Substance: VITAMIN B

REACTIONS (7)
  - Rheumatoid arthritis [Unknown]
  - Sinusitis [Unknown]
  - Malaise [Unknown]
  - COVID-19 [Unknown]
  - Rash [Unknown]
  - Product use in unapproved indication [Unknown]
  - Product dose omission issue [Unknown]
